FAERS Safety Report 5224328-0 (Version None)
Quarter: 2007Q1

REPORT INFORMATION
  Report Type: 
  Country: None (occurrence: None)
  Receive Date: 20070130
  Receipt Date: 20070122
  Transmission Date: 20070707
  Serious: Yes (Hospitalization)
  Sender: FDA-Public Use
  Company Number: JP-BOEHRINGER INGELHEIM PHARMACEUTICALS, INC.-2007-BP-00630NB

PATIENT
  Sex: Female
  Weight: 45.2 kg

DRUGS (5)
  1. BI-SIFROL TABLETS [Suspect]
     Indication: PARKINSON'S DISEASE
     Route: 048
     Dates: start: 20050801, end: 20060703
  2. MENESIT [Concomitant]
     Indication: PARKINSON'S DISEASE
     Route: 048
     Dates: start: 20000701
  3. MARZULENE [Concomitant]
     Indication: GASTRITIS
     Route: 048
  4. MAGNESIUM OXIDE [Concomitant]
     Indication: CONSTIPATION
     Route: 048
  5. MYONAL (EPERISONE HYDROCHLORIDE) [Concomitant]
     Indication: BACK PAIN
     Route: 048

REACTIONS (4)
  - FREEZING PHENOMENON [None]
  - MUSCLE RIGIDITY [None]
  - POSTURE ABNORMAL [None]
  - TREMOR [None]
